FAERS Safety Report 17136976 (Version 1)
Quarter: 2019Q4

REPORT INFORMATION
  Report Type: Spontaneous
  Country: DE (occurrence: DE)
  Receive Date: 20191210
  Receipt Date: 20191210
  Transmission Date: 20200122
  Serious: Yes (Other)
  Sender: FDA-Public Use
  Company Number: DE-PFIZER INC-2019529784

PATIENT
  Age: 42 Year
  Sex: Male
  Weight: 89.5 kg

DRUGS (5)
  1. SERTRALINE HCL [Suspect]
     Active Substance: SERTRALINE HYDROCHLORIDE
     Indication: DEPRESSION
     Dosage: UNK
  2. HEMLIBRA [Suspect]
     Active Substance: EMICIZUMAB-KXWH
     Indication: FACTOR VIII DEFICIENCY
     Dosage: UNK, WEEKLY (1 OF UNSPECIFIED UNIT)
     Dates: start: 20190405
  3. FACTOR VIII [Concomitant]
     Active Substance: ANTIHEMOPHILIC FACTOR HUMAN
     Indication: PROPHYLAXIS
     Dosage: 2000 IU, UNK (BEFORE SERTRALIN THERAPY)
  4. FACTOR VIII [Concomitant]
     Active Substance: ANTIHEMOPHILIC FACTOR HUMAN
     Dosage: 4000 IU, UNK (DURING SERTRALIN THERAPY)
  5. HEMLIBRA [Suspect]
     Active Substance: EMICIZUMAB-KXWH
     Dosage: 1.5 MG/KG, WEEKLY (MAINTENANCE THERAPY)
     Dates: start: 20190503

REACTIONS (5)
  - Joint swelling [Recovering/Resolving]
  - Haemarthrosis [Unknown]
  - Joint effusion [Unknown]
  - Arthralgia [Unknown]
  - Synovitis [Recovering/Resolving]

NARRATIVE: CASE EVENT DATE: 20190731
